FAERS Safety Report 21609913 (Version 1)
Quarter: 2022Q4

REPORT INFORMATION
  Report Type: Spontaneous
  Country: US (occurrence: None)
  Receive Date: 20221117
  Receipt Date: 20221117
  Transmission Date: 20230113
  Serious: Yes (Hospitalization)
  Sender: FDA-Public Use
  Company Number: None

PATIENT
  Age: 16 Year
  Sex: Male
  Weight: 37 kg

DRUGS (2)
  1. VEDOLIZUMAB [Suspect]
     Active Substance: VEDOLIZUMAB
     Indication: Colitis ulcerative
     Dosage: OTHER FREQUENCY : EVERY 8 WEEKS;?
     Route: 040
     Dates: start: 20200626
  2. Bone Marrow Transplant [Concomitant]

REACTIONS (6)
  - Central nervous system lesion [None]
  - Intracranial mass [None]
  - Human polyomavirus infection [None]
  - Central nervous system viral infection [None]
  - Infection reactivation [None]
  - Encephalomyelitis [None]

NARRATIVE: CASE EVENT DATE: 20220511
